FAERS Safety Report 18570940 (Version 1)
Quarter: 2020Q4

REPORT INFORMATION
  Report Type: Spontaneous
  Country: US (occurrence: US)
  Receive Date: 20201202
  Receipt Date: 20201202
  Transmission Date: 20210114
  Serious: No
  Sender: FDA-Public Use
  Company Number: US-ROCHE-2707679

PATIENT
  Age: 38 Year
  Sex: Female

DRUGS (1)
  1. EVRYSDI [Suspect]
     Active Substance: RISDIPLAM
     Indication: SPINAL MUSCULAR ATROPHY
     Dosage: FREQUENCY:1; ONGOING:YES
     Route: 048
     Dates: start: 20201024

REACTIONS (2)
  - No adverse event [Unknown]
  - Product storage error [Unknown]
